FAERS Safety Report 15968247 (Version 1)
Quarter: 2019Q1

REPORT INFORMATION
  Report Type: Report from Study
  Country: JP (occurrence: JP)
  Receive Date: 20190215
  Receipt Date: 20190215
  Transmission Date: 20190418
  Serious: Yes (Death)
  Sender: FDA-Public Use
  Company Number: JP-PFIZER INC-2017335642

PATIENT

DRUGS (4)
  1. CISPLATIN. [Suspect]
     Active Substance: CISPLATIN
     Indication: SQUAMOUS CELL CARCINOMA OF HEAD AND NECK
     Dosage: 75 MG/M2, CYCLIC (ON DAY 1, CYCLES WERE REPEATED EVERY 21 DAYS FOR THREE CYCLES)
     Route: 042
  2. CETUXIMAB. [Suspect]
     Active Substance: CETUXIMAB
     Indication: SQUAMOUS CELL CARCINOMA OF HEAD AND NECK
     Dosage: 400 MG/M2, CYCLIC (ON DAY 1 OF CYCLE 1) CYCLES WERE REPEATED EVERY 21 DAYS FOR THREE CYCLES
     Route: 042
  3. DOCETAXEL. [Suspect]
     Active Substance: DOCETAXEL
     Indication: SQUAMOUS CELL CARCINOMA OF HEAD AND NECK
     Dosage: 75 MG/M2, CYCLIC (ON DAY 1, CYCLES WERE REPEATED EVERY 21 DAYS FOR THREE CYCLES)
     Route: 042
  4. CETUXIMAB. [Suspect]
     Active Substance: CETUXIMAB
     Dosage: 250 MG/M2, WEEKLY (UNTIL THE END OF RADIOTHERAPY) ON DAYS 1, 8, AND 15
     Route: 042

REACTIONS (1)
  - Death [Fatal]
